FAERS Safety Report 10730513 (Version 2)
Quarter: 2015Q1

REPORT INFORMATION
  Report Type: Spontaneous
  Country: JP (occurrence: JP)
  Receive Date: 20150122
  Receipt Date: 20150209
  Transmission Date: 20150721
  Serious: Yes (Other)
  Sender: FDA-Public Use
  Company Number: JP-PFIZER INC-2015022344

PATIENT
  Age: 14 Year
  Sex: Female

DRUGS (2)
  1. ANCARON [Suspect]
     Active Substance: AMIODARONE HYDROCHLORIDE
     Dosage: 150 MG, 1X/DAY
     Route: 065
     Dates: start: 201411, end: 201501
  2. ANCARON [Suspect]
     Active Substance: AMIODARONE HYDROCHLORIDE
     Indication: SUPRAVENTRICULAR TACHYCARDIA
     Dosage: 200 MG, 1X/DAY
     Route: 065
     Dates: start: 201304, end: 201411

REACTIONS (5)
  - Infection [Recovered/Resolved]
  - Infection [Recovered/Resolved]
  - Liver disorder [Recovering/Resolving]
  - Drug level increased [Not Recovered/Not Resolved]
  - Corneal pigmentation [Not Recovered/Not Resolved]

NARRATIVE: CASE EVENT DATE: 201405
